FAERS Safety Report 4801938-3 (Version None)
Quarter: 2005Q4

REPORT INFORMATION
  Report Type: 
  Country: None (occurrence: None)
  Receive Date: 20051014
  Receipt Date: 20051014
  Transmission Date: 20060501
  Serious: Yes (Other)
  Sender: FDA-Public Use
  Company Number: None

PATIENT
  Age: 10 Year
  Sex: Male
  Weight: 66.2252 kg

DRUGS (3)
  1. METHYLPHENIDATE HCL [Suspect]
     Indication: ATTENTION DEFICIT/HYPERACTIVITY DISORDER
     Dosage: 20 MG TWO PO QAM
     Route: 048
     Dates: start: 20031001, end: 20050603
  2. STRATTERA [Suspect]
     Dosage: 25 MG ONE PO QAM
     Route: 048
     Dates: start: 20030401, end: 20030529
  3. CONCERTA [Suspect]
     Dosage: 54MG ONE PO QAM
     Route: 048
     Dates: start: 20010320, end: 20031001

REACTIONS (5)
  - DRUG INEFFECTIVE [None]
  - MENTAL STATUS CHANGES [None]
  - NAUSEA [None]
  - TIC [None]
  - VOMITING [None]
